FAERS Safety Report 18775326 (Version 1)
Quarter: 2021Q1

REPORT INFORMATION
  Report Type: Report from Study
  Country: US (occurrence: US)
  Receive Date: 20210122
  Receipt Date: 20210122
  Transmission Date: 20210419
  Serious: Yes (Hospitalization, Other)
  Sender: FDA-Public Use
  Company Number: US-JNJFOC-20201127101

PATIENT
  Age: 62 Year
  Sex: Male
  Weight: 83.99 kg

DRUGS (22)
  1. SPIRONOLACTONE. [Concomitant]
     Active Substance: SPIRONOLACTONE
  2. BUMETANIDE. [Concomitant]
     Active Substance: BUMETANIDE
  3. TAMSULOSIN [Concomitant]
     Active Substance: TAMSULOSIN
  4. IRON [Concomitant]
     Active Substance: IRON
  5. ADCIRCA [Concomitant]
     Active Substance: TADALAFIL
  6. SELEXIPAG [Suspect]
     Active Substance: SELEXIPAG
     Indication: PULMONARY ARTERIAL HYPERTENSION
     Route: 048
  7. DIGOXIN. [Concomitant]
     Active Substance: DIGOXIN
  8. ADVAIR HFA [Concomitant]
     Active Substance: FLUTICASONE PROPIONATE\SALMETEROL XINAFOATE
  9. ACETYLDIGOXIN [Concomitant]
     Active Substance: .ALPHA.-ACETYLDIGOXIN
  10. SELEXIPAG [Suspect]
     Active Substance: SELEXIPAG
     Route: 048
     Dates: start: 20201025
  11. XARELTO [Suspect]
     Active Substance: RIVAROXABAN
     Indication: PRODUCT USED FOR UNKNOWN INDICATION
     Route: 065
  12. ORENITRAM [Concomitant]
     Active Substance: TREPROSTINIL
  13. BUMEX [Concomitant]
     Active Substance: BUMETANIDE
  14. OXYCODONE [Concomitant]
     Active Substance: OXYCODONE
  15. OXYGEN. [Concomitant]
     Active Substance: OXYGEN
  16. SILDENAFIL CITRATE. [Concomitant]
     Active Substance: SILDENAFIL CITRATE
  17. ACETAMINOPHEN. [Concomitant]
     Active Substance: ACETAMINOPHEN
  18. MUCINEX [Concomitant]
     Active Substance: GUAIFENESIN
  19. LEVOTHYROXINE. [Concomitant]
     Active Substance: LEVOTHYROXINE
  20. VENTOLIN HFA [Concomitant]
     Active Substance: ALBUTEROL SULFATE
  21. SELEXIPAG [Suspect]
     Active Substance: SELEXIPAG
     Route: 048
     Dates: start: 202010
  22. LETAIRIS [Concomitant]
     Active Substance: AMBRISENTAN

REACTIONS (13)
  - Pulmonary hypertension [Unknown]
  - Nausea [Unknown]
  - Diabetes mellitus [Unknown]
  - Presyncope [Unknown]
  - Oxygen saturation decreased [Unknown]
  - Internal haemorrhage [Unknown]
  - Throat irritation [Unknown]
  - Dizziness [Unknown]
  - Cough [Unknown]
  - Hot flush [Unknown]
  - Dysphonia [Unknown]
  - Peripheral swelling [Unknown]
  - Dyspnoea [Unknown]

NARRATIVE: CASE EVENT DATE: 20201105
